FAERS Safety Report 14273250 (Version 1)
Quarter: 2017Q4

REPORT INFORMATION
  Report Type: Spontaneous
  Country: US (occurrence: US)
  Receive Date: 20171211
  Receipt Date: 20171211
  Transmission Date: 20180321
  Serious: Yes (Hospitalization, Other)
  Sender: FDA-Public Use
  Company Number: US-OTSUKA-2017_020039

PATIENT
  Age: 57 Year
  Sex: Male

DRUGS (1)
  1. ABILIFY [Suspect]
     Active Substance: ARIPIPRAZOLE
     Indication: BIPOLAR DISORDER
     Dosage: 30 MG, UNK
     Route: 048
     Dates: start: 2008, end: 20160401

REACTIONS (9)
  - Impulsive behaviour [Unknown]
  - Anxiety [Unknown]
  - Psychosexual disorder [Unknown]
  - Obsessive-compulsive disorder [Unknown]
  - Condition aggravated [Unknown]
  - Mental disorder [Unknown]
  - Weight increased [Unknown]
  - Emotional distress [Unknown]
  - Gambling [Unknown]

NARRATIVE: CASE EVENT DATE: 2016
